FAERS Safety Report 8998904 (Version 2)
Quarter: 2013Q4

REPORT INFORMATION
  Report Type: Spontaneous
  Country: DK (occurrence: DK)
  Receive Date: 20130103
  Receipt Date: 20131216
  Transmission Date: 20140711
  Serious: Yes (Other)
  Sender: FDA-Public Use
  Company Number: DK-PFIZER INC-2012333731

PATIENT
  Age: 51 Year
  Sex: Female

DRUGS (7)
  1. SALAZOPYRIN EN-TABS [Suspect]
     Dosage: DAILY DOSE 2+0+2
     Route: 048
     Dates: start: 20121102, end: 20121128
  2. LANTUS [Concomitant]
     Indication: DIABETES MELLITUS
     Dosage: 26 IU, DAILY
     Dates: start: 20080519
  3. NOVORAPID [Concomitant]
     Indication: DIABETES MELLITUS
     Dosage: 15-20 IU DAILY AFTER INTAKE OF CARBOHYDRATES
     Dates: start: 20080519
  4. ENALAPRIL MALEATE W/HYDROCHLOROTIAZIDE [Concomitant]
     Indication: HYPERTENSION
     Dosage: 1 TABLET DAILY STRENGTH 20 +12.5
     Dates: start: 20070521
  5. SPIRIX [Concomitant]
     Indication: POLYURIA
     Dosage: 1 TABLET DAILY
     Dates: start: 20070214
  6. LANSOPRAZOL [Concomitant]
     Indication: DYSPEPSIA
     Dosage: 1 TABLET DAILY
     Dates: start: 20100602
  7. PANODIL [Concomitant]

REACTIONS (4)
  - Hypertension [Recovered/Resolved]
  - Dyspnoea [Recovered/Resolved]
  - Tachycardia [Recovered/Resolved]
  - Nausea [Recovered/Resolved]
